FAERS Safety Report 13996513 (Version 1)
Quarter: 2017Q3

REPORT INFORMATION
  Report Type: Spontaneous
  Country: US (occurrence: US)
  Receive Date: 20170921
  Receipt Date: 20170921
  Transmission Date: 20171128
  Serious: Yes (Other)
  Sender: FDA-Public Use
  Company Number: US-TEVA-798912USA

PATIENT
  Age: 81 Year
  Sex: Female

DRUGS (1)
  1. CARVEDILOL. [Suspect]
     Active Substance: CARVEDILOL
     Indication: HYPERTENSION
     Dosage: EVERY SIX HOURS
     Route: 065
     Dates: start: 2012

REACTIONS (5)
  - Hypertension [Unknown]
  - Burning sensation [Unknown]
  - Vasospasm [Unknown]
  - Hypoaesthesia [Unknown]
  - Paraesthesia [Unknown]
